FAERS Safety Report 23843774 (Version 1)
Quarter: 2024Q2

REPORT INFORMATION
  Report Type: Report from Study
  Country: US (occurrence: None)
  Receive Date: 20240510
  Receipt Date: 20240510
  Transmission Date: 20240716
  Serious: Yes (Hospitalization)
  Sender: FDA-Public Use
  Company Number: 2024A107080

PATIENT
  Sex: Male

DRUGS (1)
  1. FASENRA [Suspect]
     Active Substance: BENRALIZUMAB
     Indication: Asthma
     Dosage: 30 MG/ML: INJECT 30 MG UNDER THE SKIN (SUBCUTANEOUS INJECTION) EVERY 8 WEEKS30MG/ML EVERY EIGHT ...
     Route: 058
     Dates: start: 20200616

REACTIONS (3)
  - Pneumonia [Unknown]
  - General symptom [Unknown]
  - Product use issue [Unknown]
